FAERS Safety Report 8570538-4 (Version None)
Quarter: 2012Q3

REPORT INFORMATION
  Report Type: 
  Country: None (occurrence: None)
  Receive Date: 20120803
  Receipt Date: 20120730
  Transmission Date: 20120928
  Serious: Yes (Life-Threatening)
  Sender: FDA-Public Use
  Company Number: JP-ABBOTT-12P-087-0960854-00

PATIENT
  Sex: Male
  Weight: 60.8 kg

DRUGS (9)
  1. CEFAZOLIN [Concomitant]
     Indication: PNEUMONIA
     Route: 050
     Dates: start: 20120111, end: 20120122
  2. LEVOFLOXACIN [Concomitant]
     Indication: PNEUMONIA
     Route: 048
     Dates: start: 20120113, end: 20120125
  3. CLARITHROMYCIN [Suspect]
     Route: 048
     Dates: start: 20120127, end: 20120202
  4. TULOBUTEROL [Concomitant]
     Indication: COUGH
     Route: 062
     Dates: start: 20120119
  5. CODEINE PHOSPHATE [Concomitant]
     Indication: COUGH
     Route: 048
     Dates: start: 20120127, end: 20120202
  6. CLARITHROMYCIN [Suspect]
     Indication: PNEUMONIA
     Route: 048
     Dates: start: 20111225, end: 20111229
  7. MUCOSOLVAN [Concomitant]
     Indication: PRODUCTIVE COUGH
     Route: 048
     Dates: start: 20120130, end: 20120202
  8. MEDICON [Concomitant]
     Indication: PNEUMONIA
     Route: 048
     Dates: start: 20120113, end: 20120125
  9. LANSOPRAZOLE [Concomitant]
     Indication: GASTROOESOPHAGEAL REFLUX DISEASE
     Route: 048
     Dates: start: 20120202, end: 20120208

REACTIONS (1)
  - LUNG DISORDER [None]
